FAERS Safety Report 16226548 (Version 1)
Quarter: 2019Q2

REPORT INFORMATION
  Report Type: Spontaneous
  Country: US (occurrence: US)
  Receive Date: 20190423
  Receipt Date: 20190423
  Transmission Date: 20190711
  Serious: No
  Sender: FDA-Public Use
  Company Number: US-DSJP-DSU-2019-111363

PATIENT

DRUGS (3)
  1. ARTHRITIS RELIEF [Concomitant]
     Active Substance: MENTHOL
     Indication: ARTHRITIS
     Dosage: 15 MG
     Route: 048
  2. WELCHOL [Suspect]
     Active Substance: COLESEVELAM HYDROCHLORIDE
     Indication: DIARRHOEA
     Dosage: 3750 MG, QD
     Route: 048
     Dates: start: 2015, end: 201902
  3. COLESEVELAM HCL [Suspect]
     Active Substance: COLESEVELAM HYDROCHLORIDE
     Indication: DIARRHOEA
     Dosage: 3750 MG, QD
     Route: 048
     Dates: start: 201902

REACTIONS (2)
  - Off label use [Recovered/Resolved]
  - Diarrhoea [Unknown]

NARRATIVE: CASE EVENT DATE: 201902
